FAERS Safety Report 7550223-8 (Version None)
Quarter: 2011Q2

REPORT INFORMATION
  Report Type: 
  Country: None (occurrence: None)
  Receive Date: 20110615
  Receipt Date: 20110614
  Transmission Date: 20111010
  Serious: Yes (Other)
  Sender: FDA-Public Use
  Company Number: US-UCBSA-035286

PATIENT
  Sex: Female

DRUGS (3)
  1. CIMZIA [Suspect]
     Dosage: 400 MG EVERY 2 WEEKS
     Route: 058
     Dates: start: 20100316
  2. CIMZIA [Suspect]
     Indication: CROHN'S DISEASE
     Route: 058
     Dates: start: 20081020
  3. CONTRACEPTIVE [Concomitant]
     Indication: CONTRACEPTION

REACTIONS (2)
  - GROIN ABSCESS [None]
  - FAECAL INCONTINENCE [None]
